FAERS Safety Report 10450247 (Version 4)
Quarter: 2014Q4

REPORT INFORMATION
  Report Type: Report from Study
  Country: BE (occurrence: BE)
  Receive Date: 20140912
  Receipt Date: 20141023
  Transmission Date: 20150528
  Serious: Yes (Other)
  Sender: FDA-Public Use
  Company Number: BE-PFIZER INC-2014251137

PATIENT
  Age: 62 Year
  Sex: Male

DRUGS (34)
  1. SOLU-MEDROL [Suspect]
     Active Substance: METHYLPREDNISOLONE SODIUM SUCCINATE
     Dosage: 120 MG, SINGLE DOSE
     Route: 042
     Dates: start: 20140521, end: 20140521
  2. PANTOMED [Concomitant]
     Active Substance: DEXPANTHENOL
     Dosage: 40 MG, 1X/DAY
     Route: 048
     Dates: start: 20130501
  3. PANTOMED [Concomitant]
     Active Substance: DEXPANTHENOL
     Dosage: 40 MG, 1X/DAY
     Route: 048
     Dates: start: 20130828, end: 20131216
  4. PRIVIGEN [Concomitant]
     Active Substance: HUMAN IMMUNOGLOBULIN G
     Dosage: 0.4 MG, MONTHLY
     Route: 042
     Dates: start: 20131216
  5. BENDAMUSTINE [Suspect]
     Active Substance: BENDAMUSTINE
     Indication: CHRONIC LYMPHOCYTIC LEUKAEMIA
     Dosage: DOSAGE FORM: AMPULE; DATE OF LAST DOSE PRIOR TO SAE: 15/MAY/2014 (90 MG/M^2,1 IN 1D)
     Route: 042
     Dates: start: 20140514
  6. OBINUTUZUMAB [Suspect]
     Active Substance: OBINUTUZUMAB
     Indication: CHRONIC LYMPHOCYTIC LEUKAEMIA
     Dosage: DOSAGE FORM: AMPULE; DATE OF LAST DOSE PRIOR TO SAE: 21/MAY/2014 (1000 MG,1 IN 1 D)
     Route: 042
     Dates: start: 20140514
  7. ZOFRAN [Concomitant]
     Active Substance: ONDANSETRON HYDROCHLORIDE
     Dosage: 8 MG, 1X/DAY
     Route: 048
     Dates: start: 20140924, end: 20140926
  8. FOLOVIT [Concomitant]
     Dosage: UNK
  9. SOLU-MEDROL [Suspect]
     Active Substance: METHYLPREDNISOLONE SODIUM SUCCINATE
     Dosage: 125 MG, SINGLE DOSE
     Route: 042
     Dates: start: 20140618, end: 20140618
  10. PERFUSALGAN [Concomitant]
     Active Substance: ACETAMINOPHEN
     Dosage: 1000 MG, 1X/DAY
     Route: 042
     Dates: start: 20140514, end: 20140515
  11. PERFUSALGAN [Concomitant]
     Active Substance: ACETAMINOPHEN
     Dosage: 100 MG, SINGLE DOSE
     Route: 042
     Dates: start: 20140603, end: 20140603
  12. ZOFRAN [Concomitant]
     Active Substance: ONDANSETRON HYDROCHLORIDE
     Dosage: 8 MG, 1X/DAY
     Route: 048
     Dates: start: 20140828, end: 20140830
  13. SOLU-MEDROL [Suspect]
     Active Substance: METHYLPREDNISOLONE SODIUM SUCCINATE
     Indication: PROPHYLAXIS
     Dosage: 100 MG, 2X/DAY
     Route: 042
     Dates: start: 20140514, end: 20140515
  14. PRIVIGEN [Concomitant]
     Active Substance: HUMAN IMMUNOGLOBULIN G
     Dosage: 0.4 MG, MONTHLY
     Route: 042
     Dates: start: 20131008
  15. ZOFRAN [Concomitant]
     Active Substance: ONDANSETRON HYDROCHLORIDE
     Dosage: 1 AMPOULE, 1X/DAY(1 AMPOULE (1 IN 1 D)
     Route: 042
     Dates: start: 20140728, end: 20140729
  16. SOLU-MEDROL [Suspect]
     Active Substance: METHYLPREDNISOLONE SODIUM SUCCINATE
     Dosage: 40 MG, SINGLE DOSE
     Route: 042
     Dates: start: 20140828, end: 20140828
  17. COZAAR [Concomitant]
     Active Substance: LOSARTAN POTASSIUM
     Dosage: 25 MG, 1X/DAY
     Route: 048
     Dates: start: 20110211
  18. PERFUSALGAN [Concomitant]
     Active Substance: ACETAMINOPHEN
     Dosage: 1000 MG SINGLE DOSE
     Route: 042
     Dates: start: 20140521, end: 20140521
  19. CETIRIZINE [Concomitant]
     Active Substance: CETIRIZINE HYDROCHLORIDE
     Dosage: 10 MG SINGLE DOSE
     Route: 048
     Dates: start: 20140618, end: 20140618
  20. CETIRIZINE [Concomitant]
     Active Substance: CETIRIZINE HYDROCHLORIDE
     Dosage: 10 MG, SINGLE DOSE
     Route: 048
     Dates: start: 20140924, end: 20140924
  21. SOLU-MEDROL [Suspect]
     Active Substance: METHYLPREDNISOLONE SODIUM SUCCINATE
     Dosage: 120 MG, SINGLE DOSE
     Route: 042
     Dates: start: 20140603, end: 20140603
  22. SOLU-MEDROL [Suspect]
     Active Substance: METHYLPREDNISOLONE SODIUM SUCCINATE
     Dosage: 40 MG, SINGLE DOSE
     Route: 042
     Dates: start: 20140728, end: 20140728
  23. ACICLOVIR [Concomitant]
     Active Substance: ACYCLOVIR
     Dosage: 800 MG, UNK
     Dates: start: 20130819
  24. CETIRIZINE [Concomitant]
     Active Substance: CETIRIZINE HYDROCHLORIDE
     Dosage: 10 MG SINGLE DOSE
     Route: 048
     Dates: start: 20140521, end: 20140521
  25. CETIRIZINE [Concomitant]
     Active Substance: CETIRIZINE HYDROCHLORIDE
     Dosage: 10 MG SINGLE DOSE
     Route: 048
     Dates: start: 20140828, end: 20140828
  26. SOLU-MEDROL [Suspect]
     Active Substance: METHYLPREDNISOLONE SODIUM SUCCINATE
     Dosage: 40 MG, SINGLE DOSE
     Route: 042
     Dates: start: 20140924, end: 20140924
  27. BEFACT [Concomitant]
     Dosage: 1 DF, 1X/DAY
     Route: 048
     Dates: start: 20130628, end: 20131201
  28. ACICLOVIR [Concomitant]
     Active Substance: ACYCLOVIR
     Dosage: 400 MG, 2X/DAY
     Route: 048
     Dates: start: 20140303
  29. FASTURTEC [Concomitant]
     Active Substance: RASBURICASE
     Dosage: 7.5 MG, SINGLE DOSE
     Route: 042
     Dates: start: 20140514, end: 20140514
  30. CETIRIZINE [Concomitant]
     Active Substance: CETIRIZINE HYDROCHLORIDE
     Indication: PROPHYLAXIS
     Dosage: 10 MG, 1X/DAY
     Route: 048
     Dates: start: 20140514, end: 20140515
  31. ALLOPURINOL. [Concomitant]
     Active Substance: ALLOPURINOL
     Dosage: 300 MG, SINGLE DOSE
     Route: 048
     Dates: start: 20140514, end: 20140514
  32. CETIRIZINE [Concomitant]
     Active Substance: CETIRIZINE HYDROCHLORIDE
     Dosage: 10 MG SINGLE DOSE
     Route: 048
     Dates: start: 20140603, end: 20140603
  33. CETIRIZINE [Concomitant]
     Active Substance: CETIRIZINE HYDROCHLORIDE
     Dosage: 10 MG SINGLE DOSE
     Route: 048
     Dates: start: 20140728, end: 20140728
  34. ZOFRAN [Concomitant]
     Active Substance: ONDANSETRON HYDROCHLORIDE
     Indication: PROPHYLAXIS
     Dosage: 8 MG, 2X/DAY
     Route: 042
     Dates: start: 20140514, end: 20140515

REACTIONS (1)
  - Bronchopulmonary aspergillosis [Not Recovered/Not Resolved]

NARRATIVE: CASE EVENT DATE: 20140515
